FAERS Safety Report 7812341-6 (Version None)
Quarter: 2011Q4

REPORT INFORMATION
  Report Type: 
  Country: None (occurrence: None)
  Receive Date: 20111013
  Receipt Date: 20111007
  Transmission Date: 20120403
  Serious: Yes (Other)
  Sender: FDA-Public Use
  Company Number: US-GLAXOSMITHKLINE-A0945818A

PATIENT
  Age: 62 Year
  Sex: Male

DRUGS (12)
  1. AMLODIPINE [Concomitant]
  2. ATENOLOL [Concomitant]
     Indication: HYPERTENSION
  3. METFORMIN HYDROCHLORIDE [Concomitant]
  4. CHLORTHALIDONE [Concomitant]
  5. VOTRIENT [Suspect]
     Indication: RENAL CELL CARCINOMA
     Dosage: 800MG PER DAY
     Route: 048
     Dates: start: 20110907, end: 20111002
  6. FISH OIL [Concomitant]
  7. POTASSIUM CHLORIDE [Concomitant]
  8. DOXAZOSIN MESYLATE [Concomitant]
  9. ASPIRIN [Concomitant]
  10. DIAZEPAM [Concomitant]
  11. GLIPIZIDE [Concomitant]
  12. UNSPECIFIED MEDICATION [Concomitant]
     Indication: JOINT SWELLING

REACTIONS (7)
  - HYPERTENSION [None]
  - SKIN CHAPPED [None]
  - AGEUSIA [None]
  - FATIGUE [None]
  - ABDOMINAL PAIN UPPER [None]
  - HAEMORRHAGE [None]
  - ILL-DEFINED DISORDER [None]
